FAERS Safety Report 8432960-6 (Version None)
Quarter: 2012Q2

REPORT INFORMATION
  Report Type: 
  Country: None (occurrence: None)
  Receive Date: 20120613
  Receipt Date: 20120604
  Transmission Date: 20120825
  Serious: Yes (Other)
  Sender: FDA-Public Use
  Company Number: JP-ROCHE-1071836

PATIENT
  Sex: Female

DRUGS (11)
  1. ACTEMRA [Suspect]
     Route: 041
     Dates: start: 20101005, end: 20111110
  2. ALENDRONATE SODIUM [Concomitant]
     Indication: OSTEOPOROSIS
     Route: 048
  3. ACTEMRA [Suspect]
     Indication: RHEUMATOID ARTHRITIS
     Route: 041
     Dates: start: 20090302, end: 20100830
  4. ISONIAZID [Concomitant]
     Indication: ANTIBIOTIC PROPHYLAXIS
     Route: 048
     Dates: start: 20090205
  5. LOXONIN [Concomitant]
     Indication: RHEUMATOID ARTHRITIS
     Route: 048
     Dates: end: 20090420
  6. PREDNISOLONE [Concomitant]
     Route: 048
     Dates: start: 20090519, end: 20100329
  7. OPALMON [Concomitant]
     Indication: SPINAL COLUMN STENOSIS
     Route: 048
  8. RHEUMATREX [Concomitant]
     Indication: RHEUMATOID ARTHRITIS
     Route: 048
  9. PREDNISOLONE [Concomitant]
     Indication: RHEUMATOID ARTHRITIS
     Route: 048
     Dates: end: 20090518
  10. WARKMIN [Concomitant]
     Indication: OSTEOPOROSIS
     Route: 048
  11. FAMOTIDINE [Concomitant]
     Indication: PROPHYLAXIS
     Route: 048
     Dates: end: 20090420

REACTIONS (1)
  - CEREBRAL HAEMORRHAGE [None]
